FAERS Safety Report 6788372-4 (Version None)
Quarter: 2010Q2

REPORT INFORMATION
  Report Type: 
  Country: None (occurrence: None)
  Receive Date: 20100623
  Receipt Date: 20080329
  Transmission Date: 20101027
  Serious: Yes (Other)
  Sender: FDA-Public Use
  Company Number: US-PFIZER INC-2008011905

PATIENT
  Sex: Female
  Weight: 96 kg

DRUGS (2)
  1. DEPO-SUBQ PROVERA 104 [Suspect]
     Indication: CONTRACEPTION
     Dosage: 3 EVERY NA MONTHSFIRST INJECTION
     Route: 058
     Dates: start: 20071105, end: 20071105
  2. DEPO-SUBQ PROVERA 104 [Suspect]
     Dosage: 3 EVERY NA MONTHSMOST RECENT INJECTION
     Route: 058
     Dates: start: 20080201, end: 20080201

REACTIONS (14)
  - ABDOMINAL PAIN [None]
  - ABDOMINAL PAIN UPPER [None]
  - ARTHRALGIA [None]
  - ASTHENIA [None]
  - FACIAL PALSY [None]
  - HEADACHE [None]
  - INFECTION [None]
  - INFLUENZA LIKE ILLNESS [None]
  - INJECTION SITE DISCOMFORT [None]
  - INJECTION SITE REACTION [None]
  - NAUSEA [None]
  - SPINAL DISORDER [None]
  - VOMITING [None]
  - WEIGHT DECREASED [None]
